FAERS Safety Report 6516743-X (Version None)
Quarter: 2009Q4

REPORT INFORMATION
  Report Type: 
  Country: None (occurrence: None)
  Receive Date: 20091223
  Receipt Date: 20091221
  Transmission Date: 20100525
  Serious: Yes (Other)
  Sender: FDA-Public Use
  Company Number: CHPA2009NZ23862

PATIENT
  Sex: Female

DRUGS (3)
  1. HABITROL 21 MG (NCH) [Suspect]
     Indication: SMOKING CESSATION THERAPY
     Dosage: 21 MG, UNK
     Route: 062
  2. NICOTINELL LOZENGE (NCH) [Suspect]
     Dosage: 2 MG, UNK
     Route: 048
  3. ANTIDEPRESSANTS [Concomitant]

REACTIONS (5)
  - ANAPHYLACTIC REACTION [None]
  - APPLICATION SITE IRRITATION [None]
  - APPLICATION SITE URTICARIA [None]
  - OVERDOSE [None]
  - TREATMENT NONCOMPLIANCE [None]
